FAERS Safety Report 6510541-9 (Version None)
Quarter: 2009Q4

REPORT INFORMATION
  Report Type: 
  Country: None (occurrence: None)
  Receive Date: 20091222
  Receipt Date: 20091026
  Transmission Date: 20100525
  Serious: No
  Sender: FDA-Public Use
  Company Number: US-ASTRAZENECA-2009SE22564

PATIENT
  Age: 18575 Day
  Sex: Male
  Weight: 88.5 kg

DRUGS (5)
  1. CRESTOR [Suspect]
     Indication: BLOOD CHOLESTEROL INCREASED
     Route: 048
     Dates: start: 20090805
  2. MULTI-VITAMINS [Concomitant]
     Route: 048
  3. FISH OIL [Concomitant]
     Route: 048
  4. BABY ASPIRIN [Concomitant]
     Route: 048
  5. COQ10 [Concomitant]
     Route: 048

REACTIONS (3)
  - ASPARTATE AMINOTRANSFERASE INCREASED [None]
  - HYPERGLYCAEMIA [None]
  - MEAN CELL HAEMOGLOBIN INCREASED [None]
